FAERS Safety Report 4524851-8 (Version None)
Quarter: 2004Q4

REPORT INFORMATION
  Report Type: 
  Country: None (occurrence: None)
  Receive Date: 20041210
  Receipt Date: 20041210
  Transmission Date: 20050328
  Serious: No
  Sender: FDA-Public Use
  Company Number: None

PATIENT
  Age: 67 Year
  Sex: Female
  Weight: 87.0906 kg

DRUGS (12)
  1. TRACLEER [Suspect]
     Indication: INTERSTITIAL LUNG DISEASE
     Dosage: 62.5 MG PO TID
     Route: 048
     Dates: start: 20041124, end: 20041208
  2. TRACLEER [Suspect]
     Indication: PULMONARY HYPERTENSION
     Dosage: 62.5 MG PO TID
     Route: 048
     Dates: start: 20041124, end: 20041208
  3. LASIX [Concomitant]
  4. KCL TAB [Concomitant]
  5. OROMORPH [Concomitant]
  6. PREDNISONE [Concomitant]
  7. FIORINAL [Concomitant]
  8. AZULFIDINE [Concomitant]
  9. PAXIL [Concomitant]
  10. L-THYROXINE [Concomitant]
  11. PREMARIN [Concomitant]
  12. FOSAMAX [Concomitant]

REACTIONS (4)
  - ASCITES [None]
  - HEPATIC CONGESTION [None]
  - MYOCLONUS [None]
  - OEDEMA PERIPHERAL [None]
